FAERS Safety Report 7749849-8 (Version None)
Quarter: 2011Q3

REPORT INFORMATION
  Report Type: 
  Country: None (occurrence: None)
  Receive Date: 20110914
  Receipt Date: 20110909
  Transmission Date: 20111222
  Serious: Yes (Death)
  Sender: FDA-Public Use
  Company Number: FR-ROCHE-802079

PATIENT
  Age: 80 Year
  Sex: Male
  Weight: 60 kg

DRUGS (6)
  1. ALPRAZOLAM [Concomitant]
     Indication: ANXIETY
     Route: 048
     Dates: start: 20110823, end: 20110909
  2. BEVACIZUMAB [Suspect]
     Dosage: DAY 11 OF 4TH COURSE COMPLETED
     Route: 042
     Dates: start: 20110621, end: 20110909
  3. SPECIAFOLDINE [Concomitant]
     Route: 048
     Dates: start: 20110621, end: 20110909
  4. CORTANCYL [Concomitant]
     Route: 048
     Dates: start: 20110815, end: 20110909
  5. PEMETREXED [Suspect]
     Dosage: DAY 11 OF 4TH COURSE COMPLETED
     Route: 042
     Dates: start: 20110621, end: 20110909
  6. ACETAMINOPHEN [Concomitant]
     Indication: PAIN
     Route: 048
     Dates: start: 20110906, end: 20110909

REACTIONS (5)
  - BRADYCARDIA [None]
  - HYPOTENSION [None]
  - HAEMATEMESIS [None]
  - ACUTE RESPIRATORY FAILURE [None]
  - PANCYTOPENIA [None]
